FAERS Safety Report 7728747-X (Version None)
Quarter: 2011Q3

REPORT INFORMATION
  Report Type: 
  Country: None (occurrence: None)
  Receive Date: 20110831
  Receipt Date: 20110816
  Transmission Date: 20111222
  Serious: Yes (Life-Threatening, Hospitalization, Other)
  Sender: FDA-Public Use
  Company Number: 2011MA012016

PATIENT
  Age: 36 Year
  Sex: Female

DRUGS (1)
  1. FEVERALL [Suspect]
     Indication: OVERDOSE
     Dosage: 60 GM;X1

REACTIONS (10)
  - LIVER TRANSPLANT [None]
  - ACUTE HEPATIC FAILURE [None]
  - COMA [None]
  - HEPATIC ENCEPHALOPATHY [None]
  - MULTI-ORGAN FAILURE [None]
  - COAGULOPATHY [None]
  - BRAIN OEDEMA [None]
  - INTRAVENTRICULAR HAEMORRHAGE [None]
  - OVERDOSE [None]
  - CEREBRAL HAEMORRHAGE [None]
